FAERS Safety Report 5245875-1 (Version None)
Quarter: 2007Q1

REPORT INFORMATION
  Report Type: 
  Country: None (occurrence: None)
  Receive Date: 20070223
  Receipt Date: 20070220
  Transmission Date: 20070707
  Serious: Yes (Hospitalization)
  Sender: FDA-Public Use
  Company Number: DE-ABBOTT-07P-062-0358870-00

PATIENT
  Sex: Male

DRUGS (1)
  1. ZEMPLAR [Suspect]
     Indication: HYPERPARATHYROIDISM SECONDARY
     Route: 042
     Dates: start: 20060725

REACTIONS (8)
  - FOOT FRACTURE [None]
  - GANGRENE [None]
  - LEG AMPUTATION [None]
  - OSTEOMYELITIS [None]
  - PAIN IN EXTREMITY [None]
  - PATHOLOGICAL FRACTURE [None]
  - PERIPHERAL ARTERIAL OCCLUSIVE DISEASE [None]
  - TOE AMPUTATION [None]
